FAERS Safety Report 13151864 (Version 1)
Quarter: 2017Q1

REPORT INFORMATION
  Report Type: Report from Study
  Country: US (occurrence: US)
  Receive Date: 20170125
  Receipt Date: 20170125
  Transmission Date: 20170428
  Serious: Yes (Other)
  Sender: FDA-Public Use
  Company Number: PHEH2017US002314

PATIENT
  Age: 9 Year
  Sex: Female

DRUGS (1)
  1. ILARIS [Suspect]
     Active Substance: CANAKINUMAB
     Indication: PRODUCT USED FOR UNKNOWN INDICATION
     Route: 065

REACTIONS (7)
  - Weight increased [Unknown]
  - Dysuria [Unknown]
  - Rash [Unknown]
  - Pyrexia [Unknown]
  - Juvenile idiopathic arthritis [Unknown]
  - White blood cell count decreased [Unknown]
  - Urinary tract infection [Unknown]
